FAERS Safety Report 15885315 (Version 2)
Quarter: 2019Q1

REPORT INFORMATION
  Report Type: Spontaneous
  Country: ES (occurrence: ES)
  Receive Date: 20190129
  Receipt Date: 20190308
  Transmission Date: 20190417
  Serious: Yes (Death)
  Sender: FDA-Public Use
  Company Number: ES-CELGENEUS-ESP-20190108114

PATIENT
  Age: 47 Year
  Sex: Male
  Weight: 74 kg

DRUGS (3)
  1. AZACITIDINE. [Suspect]
     Active Substance: AZACITIDINE
     Indication: NON-HODGKIN^S LYMPHOMA
     Route: 041
     Dates: start: 20180812, end: 20190116
  2. ISTODAX [Suspect]
     Active Substance: ROMIDEPSIN
     Indication: NON-HODGKIN^S LYMPHOMA
     Dosage: 12 MILLIGRAM/SQ. METER
     Route: 041
     Dates: start: 20180812, end: 20190116
  3. ISTODAX [Suspect]
     Active Substance: ROMIDEPSIN
     Indication: DRUG INEFFECTIVE

REACTIONS (1)
  - Non-Hodgkin^s lymphoma [Fatal]

NARRATIVE: CASE EVENT DATE: 20190122
